FAERS Safety Report 24313084 (Version 1)
Quarter: 2024Q3

REPORT INFORMATION
  Report Type: Report from Study
  Country: CN (occurrence: CN)
  Receive Date: 20240912
  Receipt Date: 20240912
  Transmission Date: 20241016
  Serious: Yes (Hospitalization)
  Sender: SANOFI AVENTIS
  Company Number: CN-SA-2022SA233010

PATIENT
  Age: 52 Year
  Sex: Male
  Weight: 56 kg

DRUGS (15)
  1. OXALIPLATIN [Suspect]
     Active Substance: OXALIPLATIN
     Indication: Adenocarcinoma gastric
     Dosage: 208 MG, Q3W
     Route: 042
     Dates: start: 20211229, end: 20211229
  2. OXALIPLATIN [Suspect]
     Active Substance: OXALIPLATIN
     Indication: Oesophageal adenocarcinoma
     Dosage: 208 MG, Q3W
     Route: 042
     Dates: start: 20220119, end: 20220119
  3. CAPECITABINE [Suspect]
     Active Substance: CAPECITABINE
     Indication: Adenocarcinoma gastric
     Dosage: 1600 MG, BID FOR 14 DAYS EVERY 3 WEEKS
     Route: 048
     Dates: start: 20211229, end: 20220119
  4. CAPECITABINE [Suspect]
     Active Substance: CAPECITABINE
     Indication: Oesophageal adenocarcinoma
     Dosage: 3200 MG
     Route: 048
     Dates: start: 20220120, end: 20220126
  5. CAPECITABINE [Suspect]
     Active Substance: CAPECITABINE
     Dosage: 1600 MG
     Route: 048
     Dates: start: 20220127, end: 20220127
  6. CAPECITABINE [Suspect]
     Active Substance: CAPECITABINE
     Dosage: 1000 MG, BID FOR 14 DAYS EVERY 3 WEEKS
     Route: 048
     Dates: start: 20211229, end: 20220126
  7. CAPECITABINE [Suspect]
     Active Substance: CAPECITABINE
     Dosage: 1000 MG, BID FOR 14 DAYS EVERY 3 WEEKS
     Route: 048
     Dates: start: 20220127, end: 20220127
  8. CARBOHYDRATES\FATTY ACIDS\MINERALS\PROTEIN\VITAMINS [Concomitant]
     Active Substance: CARBOHYDRATES\FATTY ACIDS\MINERALS\PROTEIN\VITAMINS
     Dosage: 55.8 G
     Route: 048
     Dates: start: 20211126
  9. MOSAPRIDE CITRATE [Concomitant]
     Active Substance: MOSAPRIDE CITRATE
     Dosage: 5 MG
     Route: 065
     Dates: start: 20211221, end: 20220228
  10. ESOMEPRAZOLE MAGNESIUM [Concomitant]
     Active Substance: ESOMEPRAZOLE MAGNESIUM
     Dosage: 20 MG
     Route: 065
     Dates: start: 20211225, end: 20220228
  11. ESOMEPRAZOLE SODIUM [Concomitant]
     Active Substance: ESOMEPRAZOLE SODIUM
     Dosage: 40 MG
     Route: 042
     Dates: start: 20220119, end: 20220119
  12. DEXAMETHASONE SODIUM PHOSPHATE [Concomitant]
     Active Substance: DEXAMETHASONE PHOSPHATE\DEXAMETHASONE SODIUM PHOSPHATE
     Dosage: 10 MG
     Route: 042
     Dates: start: 20220119, end: 20220119
  13. METOCLOPRAMIDE HYDROCHLORIDE [Concomitant]
     Active Substance: METOCLOPRAMIDE HYDROCHLORIDE
     Dosage: 20 MG
     Route: 042
     Dates: start: 20220119, end: 20220119
  14. PHOSPHOLIPID [Concomitant]
     Active Substance: PHOSPHOLIPID
     Dosage: 15 ML
     Route: 042
     Dates: start: 20220119, end: 20220119
  15. GLUCOSE;TROPISETRON [Concomitant]
     Dosage: 100 ML
     Route: 042
     Dates: start: 20220119, end: 20220119

REACTIONS (2)
  - Liver injury [Recovered/Resolved]
  - Platelet count decreased [Recovered/Resolved]

NARRATIVE: CASE EVENT DATE: 20220127
